FAERS Safety Report 11745171 (Version 1)
Quarter: 2015Q4

REPORT INFORMATION
  Report Type: Spontaneous
  Country: US (occurrence: US)
  Receive Date: 20151117
  Receipt Date: 20151117
  Transmission Date: 20160304
  Serious: No
  Sender: FDA-Public Use
  Company Number: US-IROKO PHARMACEUTICALS LLC-US-I09001-15-00154

PATIENT
  Age: 40 Year
  Sex: Female

DRUGS (2)
  1. ZORVOLEX [Suspect]
     Active Substance: DICLOFENAC
     Indication: INFLAMMATION
  2. ZORVOLEX [Suspect]
     Active Substance: DICLOFENAC
     Indication: PAIN IN EXTREMITY
     Route: 048
     Dates: start: 20150923, end: 20150923

REACTIONS (1)
  - Menorrhagia [Not Recovered/Not Resolved]

NARRATIVE: CASE EVENT DATE: 201509
